FAERS Safety Report 8408752-0 (Version None)
Quarter: 2012Q2

REPORT INFORMATION
  Report Type: 
  Country: None (occurrence: None)
  Receive Date: 20120604
  Receipt Date: 20120531
  Transmission Date: 20120825
  Serious: Yes (Death, Other)
  Sender: FDA-Public Use
  Company Number: PHHY2012CN046603

PATIENT
  Age: 37 Year
  Sex: Male

DRUGS (4)
  1. STEROIDS NOS [Concomitant]
  2. MYCOPHENOLATE MOFETIL [Concomitant]
  3. DIURETICS [Concomitant]
  4. CYCLOSPORINE [Suspect]
     Indication: IMMUNOSUPPRESSION

REACTIONS (16)
  - RENAL DISORDER [None]
  - OEDEMA PERIPHERAL [None]
  - HYPERTENSION [None]
  - HEART RATE INCREASED [None]
  - ATRIAL FLUTTER [None]
  - HYPERCHOLESTEROLAEMIA [None]
  - OLIGURIA [None]
  - CHEST DISCOMFORT [None]
  - HYPOPERFUSION [None]
  - HEPATIC FUNCTION ABNORMAL [None]
  - CORONARY ARTERY STENOSIS [None]
  - LEFT VENTRICULAR DYSFUNCTION [None]
  - MULTI-ORGAN FAILURE [None]
  - CARDIAC FAILURE CONGESTIVE [None]
  - MYOCARDIAL INFARCTION [None]
  - PULMONARY HYPERTENSION [None]
